FAERS Safety Report 23640212 (Version 2)
Quarter: 2024Q3

REPORT INFORMATION
  Report Type: Spontaneous
  Country: IT (occurrence: IT)
  Receive Date: 20240317
  Receipt Date: 20240911
  Transmission Date: 20241017
  Serious: Yes (Hospitalization)
  Sender: ABBVIE
  Company Number: None

PATIENT
  Age: 48 Year
  Sex: Male

DRUGS (5)
  1. VENETOCLAX [Suspect]
     Active Substance: VENETOCLAX
     Indication: Acute myeloid leukaemia
     Dosage: 100 MG/DIE
     Route: 048
     Dates: start: 20240207
  2. Posaconazolo eg [Concomitant]
     Indication: Product used for unknown indication
     Dosage: 300 MG/DIE
     Route: 048
  3. FLUDARABINE PHOSPHATE [Suspect]
     Active Substance: FLUDARABINE PHOSPHATE
     Indication: Acute myeloid leukaemia
     Dosage: 30MG/MQ/DIE FROM DAY +1 TO DAY +5
     Route: 042
     Dates: start: 20240207, end: 20240211
  4. CYTARABINE [Suspect]
     Active Substance: CYTARABINE
     Indication: Acute myeloid leukaemia
     Dosage: 200MG/MQ/DIE FOR 5 DAYS
     Route: 042
     Dates: start: 20240207, end: 20240211
  5. IDARUBICIN [Suspect]
     Active Substance: IDARUBICIN
     Indication: Acute myeloid leukaemia
     Dosage: 9MG/MQ/DIE PER DAY +3, +4, +5
     Route: 042
     Dates: start: 20240207, end: 20240211

REACTIONS (2)
  - Pericarditis [Recovered/Resolved]
  - Sepsis [Recovered/Resolved]

NARRATIVE: CASE EVENT DATE: 20240225
